FAERS Safety Report 25037816 (Version 1)
Quarter: 2025Q1

REPORT INFORMATION
  Report Type: Spontaneous
  Country: GB (occurrence: None)
  Receive Date: 20250304
  Receipt Date: 20250304
  Transmission Date: 20250409
  Serious: Yes (Hospitalization, Other)
  Sender: ETHYPHARM
  Company Number: None

PATIENT

DRUGS (13)
  1. BUPRENORPHINE [Suspect]
     Active Substance: BUPRENORPHINE
     Indication: Adverse drug reaction
     Dates: start: 20231219, end: 20231221
  2. Local data (GDPR) [Concomitant]
  3. Local data (GDPR) [Concomitant]
  4. Local data (GDPR) [Concomitant]
  5. Local data (GDPR) [Concomitant]
  6. Local data (GDPR) [Concomitant]
  7. Local data (GDPR) [Concomitant]
  8. Local data (GDPR) [Concomitant]
  9. Local data (GDPR) [Concomitant]
  10. Local data (GDPR) [Concomitant]
  11. Local data (GDPR) [Concomitant]
  12. Local data (GDPR) [Concomitant]
  13. Local data (GDPR) [Concomitant]

REACTIONS (1)
  - Skin ulcer [Recovered/Resolved]

NARRATIVE: CASE EVENT DATE: 20231201
